FAERS Safety Report 8117834 (Version 2)
Quarter: 2012Q4

REPORT INFORMATION
  Report Type: 
  Country: US (occurrence: US)
  Receive Date: 20110901
  Receipt Date: 20120913
  Transmission Date: 20130627
  Serious: Yes (Hospitalization)
  Sender: FDA-Public Use
  Company Number: US-US-EMD SERONO, INC.-7079107

PATIENT
  Age: 71 Year
  Sex: Female

DRUGS (5)
  1. REBIF [Suspect]
     Indication: MULTIPLE SCLEROSIS
     Route: 058
     Dates: start: 20070629
  2. LOSARTAN [Concomitant]
     Indication: BLOOD PRESSURE
  3. BACLOFEN [Concomitant]
     Indication: MUSCLE SPASMS
  4. METFORMIN [Concomitant]
     Indication: BLOOD GLUCOSE INCREASED
  5. NAPROXEN [Concomitant]
     Indication: PAIN

REACTIONS (2)
  - Multiple sclerosis [Not Recovered/Not Resolved]
  - Fall [Unknown]
